FAERS Safety Report 5568907-X (Version None)
Quarter: 2007Q4

REPORT INFORMATION
  Report Type: 
  Country: None (occurrence: None)
  Receive Date: 20071220
  Receipt Date: 20070314
  Transmission Date: 20080405
  Serious: No
  Sender: FDA-Public Use
  Company Number: A0643411A

PATIENT
  Age: 75 Year
  Sex: Male

DRUGS (4)
  1. AVODART [Suspect]
     Indication: BENIGN PROSTATIC HYPERPLASIA
     Dosage: .5MG UNKNOWN
     Route: 048
     Dates: start: 20050101
  2. ASPIRIN [Concomitant]
  3. ALDACTONE [Concomitant]
  4. MULTI-VITAMIN [Concomitant]

REACTIONS (1)
  - RASH [None]
